FAERS Safety Report 9040591 (Version 1)
Quarter: 2013Q1

REPORT INFORMATION
  Report Type: Report from Study
  Country: US (occurrence: US)
  Receive Date: 20130129
  Receipt Date: 20130129
  Transmission Date: 20140127
  Serious: Yes (Other)
  Sender: FDA-Public Use
  Company Number: US-ABBOTT-12P-163-0890148-00

PATIENT
  Age: 58 None
  Sex: Male
  Weight: 88.53 kg

DRUGS (1)
  1. HUMIRA 40 MG/0.8 ML PEN [Suspect]
     Indication: PSORIATIC ARTHROPATHY
     Dates: start: 2008

REACTIONS (3)
  - Abdominal pain [Recovered/Resolved]
  - Malaise [Recovered/Resolved]
  - Cholecystectomy [Recovered/Resolved]
